FAERS Safety Report 12074906 (Version 2)
Quarter: 2016Q1

REPORT INFORMATION
  Report Type: Spontaneous
  Country: US (occurrence: US)
  Receive Date: 20160212
  Receipt Date: 20160229
  Transmission Date: 20160526
  Serious: Yes (Other)
  Sender: FDA-Public Use
  Company Number: US-GILEAD-2016-0197185

PATIENT
  Age: 64 Year
  Sex: Male
  Weight: 83.9 kg

DRUGS (4)
  1. TAMSULOSIN [Concomitant]
     Active Substance: TAMSULOSIN
  2. MELOXICAM. [Concomitant]
     Active Substance: MELOXICAM
  3. HARVONI [Suspect]
     Active Substance: LEDIPASVIR\SOFOSBUVIR
     Indication: HEPATITIS C
     Dosage: 1 UNK, UNK
     Route: 048
     Dates: start: 20150401, end: 20150701
  4. AVODART [Concomitant]
     Active Substance: DUTASTERIDE

REACTIONS (2)
  - Hepatitis C [Not Recovered/Not Resolved]
  - Drug ineffective [Unknown]
